FAERS Safety Report 24048948 (Version 1)
Quarter: 2024Q3

REPORT INFORMATION
  Report Type: Spontaneous
  Country: BR (occurrence: BR)
  Receive Date: 20240704
  Receipt Date: 20240704
  Transmission Date: 20241017
  Serious: Yes (Death, Other)
  Sender: SANOFI AVENTIS
  Company Number: BR-SA-SAC20240703000511

PATIENT
  Sex: Female

DRUGS (1)
  1. SARCLISA [Suspect]
     Active Substance: ISATUXIMAB-IRFC
     Dosage: UNK

REACTIONS (2)
  - Cardiac arrest [Fatal]
  - Brain death [Fatal]

NARRATIVE: CASE EVENT DATE: 20240615
